FAERS Safety Report 6426846-6 (Version None)
Quarter: 2009Q4

REPORT INFORMATION
  Report Type: 
  Country: None (occurrence: None)
  Receive Date: 20091104
  Receipt Date: 20091022
  Transmission Date: 20100525
  Serious: Yes (Hospitalization)
  Sender: FDA-Public Use
  Company Number: US-MYLANLABS-2009S1018530

PATIENT
  Age: 47 Year
  Sex: Female

DRUGS (3)
  1. INSULIN GLARGINE [Suspect]
     Indication: TYPE 1 DIABETES MELLITUS
     Route: 058
     Dates: start: 20040101
  2. METFORMIN HCL [Suspect]
     Route: 048
     Dates: end: 20090101
  3. HUMULIN 70/30 [Suspect]
     Dates: end: 20090101

REACTIONS (5)
  - BLOOD GLUCOSE DECREASED [None]
  - BLOOD PRESSURE INCREASED [None]
  - DIABETIC COMA [None]
  - HYPERGLYCAEMIA [None]
  - MOANING [None]
